FAERS Safety Report 4358421-1 (Version None)
Quarter: 2004Q2

REPORT INFORMATION
  Report Type: 
  Country: None (occurrence: None)
  Receive Date: 20040514
  Receipt Date: 20040122
  Transmission Date: 20050107
  Serious: Yes (Hospitalization)
  Sender: FDA-Public Use
  Company Number: CH-ROCHE-357220

PATIENT
  Age: 61 Year
  Sex: Male
  Weight: 77 kg

DRUGS (2)
  1. LARIAM [Suspect]
     Indication: MALARIA PROPHYLAXIS
     Dosage: DOSAGE REGIMEN REPORTED AS 250 MG.
     Route: 048
     Dates: start: 20020615
  2. LARIAM [Suspect]
     Route: 048
     Dates: end: 20030615

REACTIONS (2)
  - BLINDNESS UNILATERAL [None]
  - VITREOUS HAEMORRHAGE [None]
